FAERS Safety Report 10252344 (Version 4)
Quarter: 2015Q1

REPORT INFORMATION
  Report Type: Spontaneous
  Country: BG (occurrence: BG)
  Receive Date: 20140623
  Receipt Date: 20150102
  Transmission Date: 20150720
  Serious: Yes (Hospitalization)
  Sender: FDA-Public Use
  Company Number: BG-SA-2014SA044937

PATIENT
  Age: 63 Year
  Sex: Female

DRUGS (9)
  1. LUCETAM [Concomitant]
     Indication: ISCHAEMIC STROKE
     Route: 048
  2. ROSUVASTATIN [Concomitant]
     Active Substance: ROSUVASTATIN
  3. BLINDED THERAPY [Suspect]
     Active Substance: INVESTIGATIONAL PRODUCT
     Indication: TYPE 2 DIABETES MELLITUS
     Route: 065
     Dates: start: 20131218, end: 20140304
  4. METFORMIN [Suspect]
     Active Substance: METFORMIN HYDROCHLORIDE
     Indication: TYPE 2 DIABETES MELLITUS
     Route: 048
  5. BLINDED THERAPY [Suspect]
     Active Substance: INVESTIGATIONAL PRODUCT
     Indication: TYPE 2 DIABETES MELLITUS
     Route: 065
     Dates: start: 20141212
  6. GLIMEPIRIDE. [Concomitant]
     Active Substance: GLIMEPIRIDE
     Indication: DIABETES MELLITUS
  7. CLOPIDOGREL BISULFATE. [Suspect]
     Active Substance: CLOPIDOGREL BISULFATE
     Indication: PROPHYLAXIS
     Route: 048
  8. VALZAP [Concomitant]
     Indication: HYPERTENSION
     Route: 048
     Dates: end: 20140304
  9. LANTUS [Suspect]
     Active Substance: INSULIN GLARGINE
     Indication: TYPE 2 DIABETES MELLITUS
     Route: 058
     Dates: start: 20101115

REACTIONS (4)
  - Electrocardiogram ST segment depression [None]
  - Gastritis erosive [Recovered/Resolved]
  - Fatigue [None]
  - Tachycardia [None]

NARRATIVE: CASE EVENT DATE: 20140302
